FAERS Safety Report 26021418 (Version 1)
Quarter: 2025Q4

REPORT INFORMATION
  Report Type: Spontaneous
  Country: EU (occurrence: EU)
  Receive Date: 20251110
  Receipt Date: 20251110
  Transmission Date: 20260117
  Serious: Yes (Hospitalization)
  Sender: MYLAN
  Company Number: None

PATIENT
  Age: 70 Year
  Sex: Male

DRUGS (20)
  1. DOXAZOSIN [Suspect]
     Active Substance: DOXAZOSIN MESYLATE
     Indication: Essential hypertension
     Dosage: UNK
  2. DOXAZOSIN [Suspect]
     Active Substance: DOXAZOSIN MESYLATE
     Dosage: UNK
     Route: 048
  3. DOXAZOSIN [Suspect]
     Active Substance: DOXAZOSIN MESYLATE
     Dosage: UNK
     Route: 048
  4. DOXAZOSIN [Suspect]
     Active Substance: DOXAZOSIN MESYLATE
     Dosage: UNK
  5. SIMVASTATIN [Suspect]
     Active Substance: SIMVASTATIN
     Indication: Dyslipidaemia
     Dosage: 20 MILLIGRAM, QD
     Dates: start: 202307, end: 20250616
  6. SIMVASTATIN [Suspect]
     Active Substance: SIMVASTATIN
     Dosage: 20 MILLIGRAM, QD
     Route: 048
     Dates: start: 202307, end: 20250616
  7. SIMVASTATIN [Suspect]
     Active Substance: SIMVASTATIN
     Dosage: 20 MILLIGRAM, QD
     Route: 048
     Dates: start: 202307, end: 20250616
  8. SIMVASTATIN [Suspect]
     Active Substance: SIMVASTATIN
     Dosage: 20 MILLIGRAM, QD
     Dates: start: 202307, end: 20250616
  9. JARDIANCE [Suspect]
     Active Substance: EMPAGLIFLOZIN
     Indication: Diabetes mellitus inadequate control
     Dosage: 10 MILLIGRAM, QD
     Dates: start: 202406, end: 20250616
  10. JARDIANCE [Suspect]
     Active Substance: EMPAGLIFLOZIN
     Dosage: 10 MILLIGRAM, QD
     Route: 048
     Dates: start: 202406, end: 20250616
  11. JARDIANCE [Suspect]
     Active Substance: EMPAGLIFLOZIN
     Dosage: 10 MILLIGRAM, QD
     Route: 048
     Dates: start: 202406, end: 20250616
  12. JARDIANCE [Suspect]
     Active Substance: EMPAGLIFLOZIN
     Dosage: 10 MILLIGRAM, QD
     Dates: start: 202406, end: 20250616
  13. ENALAPRIL\LERCANIDIPINE [Suspect]
     Active Substance: ENALAPRIL\LERCANIDIPINE
     Indication: Essential hypertension
     Dosage: 20 MILLIGRAM, QD
     Dates: start: 202307, end: 20250616
  14. ENALAPRIL\LERCANIDIPINE [Suspect]
     Active Substance: ENALAPRIL\LERCANIDIPINE
     Dosage: 20 MILLIGRAM, QD
     Route: 048
     Dates: start: 202307, end: 20250616
  15. ENALAPRIL\LERCANIDIPINE [Suspect]
     Active Substance: ENALAPRIL\LERCANIDIPINE
     Dosage: 20 MILLIGRAM, QD
     Route: 048
     Dates: start: 202307, end: 20250616
  16. ENALAPRIL\LERCANIDIPINE [Suspect]
     Active Substance: ENALAPRIL\LERCANIDIPINE
     Dosage: 20 MILLIGRAM, QD
     Dates: start: 202307, end: 20250616
  17. BISOPROLOL [Concomitant]
     Active Substance: BISOPROLOL
     Indication: Essential hypertension
     Dosage: 5 MILLIGRAM, QD
     Dates: start: 202307, end: 20250616
  18. BISOPROLOL [Concomitant]
     Active Substance: BISOPROLOL
     Dosage: 5 MILLIGRAM, QD
     Route: 048
     Dates: start: 202307, end: 20250616
  19. BISOPROLOL [Concomitant]
     Active Substance: BISOPROLOL
     Dosage: 5 MILLIGRAM, QD
     Route: 048
     Dates: start: 202307, end: 20250616
  20. BISOPROLOL [Concomitant]
     Active Substance: BISOPROLOL
     Dosage: 5 MILLIGRAM, QD
     Dates: start: 202307, end: 20250616

REACTIONS (1)
  - Pancreatitis acute [Recovering/Resolving]

NARRATIVE: CASE EVENT DATE: 20250616
